FAERS Safety Report 15458706 (Version 1)
Quarter: 2018Q4

REPORT INFORMATION
  Report Type: Spontaneous
  Country: US (occurrence: US)
  Receive Date: 20181001
  Receipt Date: 20181001
  Transmission Date: 20190204
  Serious: Yes (Disabling)
  Sender: FDA-Public Use
  Company Number: None

PATIENT
  Age: 65 Year
  Sex: Female
  Weight: 80.55 kg

DRUGS (8)
  1. GENERIC CYMBALTA BRECKENRIDGE [Suspect]
     Active Substance: DULOXETINE HYDROCHLORIDE
     Indication: COMPLEX REGIONAL PAIN SYNDROME
  2. GABAPENTIN. [Concomitant]
     Active Substance: GABAPENTIN
  3. GENERIC CYMBALTA BRECKENRIDGE [Suspect]
     Active Substance: DULOXETINE HYDROCHLORIDE
     Indication: COMPLEX REGIONAL PAIN SYNDROME
     Dosage: ?          QUANTITY:90 DF DOSAGE FORM;?
     Route: 048
     Dates: start: 20180901
  4. CYMBALTA [Concomitant]
     Active Substance: DULOXETINE HYDROCHLORIDE
  5. LEVOTHYROXINE. [Concomitant]
     Active Substance: LEVOTHYROXINE
  6. GENERIC CYMBALTA BRECKENRIDGE [Suspect]
     Active Substance: DULOXETINE HYDROCHLORIDE
     Indication: PAIN
     Dosage: ?          QUANTITY:90 DF DOSAGE FORM;?
     Route: 048
     Dates: start: 20180901
  7. PRAVASTATIN. [Concomitant]
     Active Substance: PRAVASTATIN
  8. LOSARTAN. [Concomitant]
     Active Substance: LOSARTAN

REACTIONS (5)
  - Product substitution issue [None]
  - Back pain [None]
  - Gait disturbance [None]
  - Insurance issue [None]
  - Drug ineffective [None]

NARRATIVE: CASE EVENT DATE: 20180901
